FAERS Safety Report 18756726 (Version 1)
Quarter: 2021Q1

REPORT INFORMATION
  Report Type: Spontaneous
  Country: US (occurrence: US)
  Receive Date: 20210118
  Receipt Date: 20210118
  Transmission Date: 20210419
  Serious: Yes (Hospitalization)
  Sender: FDA-Public Use
  Company Number: None

PATIENT
  Age: 81 Year
  Sex: Male
  Weight: 76.5 kg

DRUGS (13)
  1. ALFUZOSIN [Concomitant]
     Active Substance: ALFUZOSIN
  2. FIASP FLEX TOUCH [Concomitant]
  3. OMEPRAZOLE. [Concomitant]
     Active Substance: OMEPRAZOLE
  4. SPIRONOLACTONE. [Concomitant]
     Active Substance: SPIRONOLACTONE
  5. TECENTRIQ [Concomitant]
     Active Substance: ATEZOLIZUMAB
  6. TYLENOL [Concomitant]
     Active Substance: ACETAMINOPHEN
  7. CBD OIL [Concomitant]
     Active Substance: CANNABIDIOL\HERBALS
  8. CORLANOR [Concomitant]
     Active Substance: IVABRADINE HYDROCHLORIDE
  9. LANTUS [Concomitant]
     Active Substance: INSULIN GLARGINE
  10. FUROSEMIDE. [Concomitant]
     Active Substance: FUROSEMIDE
  11. DOXEPIN TOPICAL [Concomitant]
  12. CAPECITABINE. [Suspect]
     Active Substance: CAPECITABINE
     Indication: PANCREATIC DISORDER
     Dosage: ?          OTHER FREQUENCY:BID 7 ON 7 OFF;?
     Route: 048
  13. TADALAFIL. [Concomitant]
     Active Substance: TADALAFIL

REACTIONS (2)
  - Abscess [None]
  - Fistula [None]

NARRATIVE: CASE EVENT DATE: 20210105
